FAERS Safety Report 4604413-4 (Version None)
Quarter: 2005Q1

REPORT INFORMATION
  Report Type: 
  Country: None (occurrence: None)
  Receive Date: 20050215
  Receipt Date: 20041201
  Transmission Date: 20050727
  Serious: Yes (Other)
  Sender: FDA-Public Use
  Company Number: 353148

PATIENT
  Age: 46 Year
  Sex: Male
  Weight: 88 kg

DRUGS (4)
  1. PEGASYS [Suspect]
     Indication: HEPATITIS C
     Dosage: 180 MCG/ML SUBCUTANEOUS
     Route: 058
     Dates: start: 20030729
  2. COPEGUS [Suspect]
     Indication: HEPATITIS C
     Dosage: 2 DOSE FORM 2 PER DAY ORAL
     Route: 048
     Dates: start: 20030729
  3. BENICAR [Concomitant]
  4. AMARYL [Concomitant]

REACTIONS (21)
  - ALANINE AMINOTRANSFERASE INCREASED [None]
  - ANOREXIA [None]
  - ARTHRALGIA [None]
  - ASPARTATE AMINOTRANSFERASE INCREASED [None]
  - BACK PAIN [None]
  - BURNING SENSATION [None]
  - DIARRHOEA [None]
  - DIZZINESS [None]
  - DYSPNOEA [None]
  - FATIGUE [None]
  - HEADACHE [None]
  - INJECTION SITE ERYTHEMA [None]
  - INJECTION SITE HAEMORRHAGE [None]
  - INJECTION SITE PRURITUS [None]
  - MENTAL IMPAIRMENT [None]
  - MYALGIA [None]
  - PAIN [None]
  - PLATELET COUNT DECREASED [None]
  - RHINORRHOEA [None]
  - SINUS CONGESTION [None]
  - SINUSITIS [None]
